FAERS Safety Report 8887149 (Version 4)
Quarter: 2013Q1

REPORT INFORMATION
  Report Type: Spontaneous
  Country: JP (occurrence: JP)
  Receive Date: 20121105
  Receipt Date: 20130125
  Transmission Date: 20140127
  Serious: Yes (Hospitalization)
  Sender: FDA-Public Use
  Company Number: JP-ROCHE-1152473

PATIENT
  Age: 40 Year
  Sex: Female

DRUGS (8)
  1. LUPRAC [Suspect]
     Indication: CARDIAC FAILURE
     Route: 048
     Dates: start: 20121010, end: 20121022
  2. LUPRAC [Suspect]
     Indication: POLYURIA
  3. LUPRAC [Suspect]
     Indication: CARDIAC FAILURE
  4. MAINTATE [Suspect]
     Indication: CARDIAC FAILURE
     Route: 048
     Dates: start: 20121005, end: 20121022
  5. MAINTATE [Suspect]
     Indication: CARDIAC FAILURE
  6. ALDACTONE-A [Suspect]
     Indication: CARDIAC FAILURE
     Route: 048
     Dates: start: 20121010, end: 20121022
  7. ALDACTONE-A [Suspect]
     Indication: CARDIAC FAILURE
  8. OLMETEC [Concomitant]
     Route: 048

REACTIONS (2)
  - White blood cell count decreased [Recovering/Resolving]
  - Leukopenia [Recovering/Resolving]
